FAERS Safety Report 15756202 (Version 1)
Quarter: 2018Q4

REPORT INFORMATION
  Report Type: Spontaneous
  Country: US (occurrence: US)
  Receive Date: 20181218
  Receipt Date: 20181218
  Transmission Date: 20190205
  Serious: No
  Sender: FDA-Public Use
  Company Number: None

PATIENT
  Sex: Male

DRUGS (2)
  1. KAPIDEX [Suspect]
     Active Substance: DEXLANSOPRAZOLE
  2. DULOXETINE. [Suspect]
     Active Substance: DULOXETINE

REACTIONS (4)
  - Product dispensing error [None]
  - Withdrawal syndrome [None]
  - Wrong product administered [None]
  - Product appearance confusion [None]

NARRATIVE: CASE EVENT DATE: 2018
